FAERS Safety Report 7349084-1 (Version None)
Quarter: 2011Q1

REPORT INFORMATION
  Report Type: 
  Country: None (occurrence: None)
  Receive Date: 20110314
  Receipt Date: 20110308
  Transmission Date: 20110831
  Serious: Yes (Death)
  Sender: FDA-Public Use
  Company Number: US-ASTELLAS-2011US000119

PATIENT

DRUGS (1)
  1. PROGRAF [Suspect]
     Indication: RENAL TRANSPLANT
     Dosage: 4.5 MG, UID/QD
     Route: 048
     Dates: start: 20020911

REACTIONS (3)
  - HAEMORRHAGE INTRACRANIAL [None]
  - BRAIN HERNIATION [None]
  - THROMBOTIC THROMBOCYTOPENIC PURPURA [None]
